FAERS Safety Report 4350639-7 (Version None)
Quarter: 2004Q2

REPORT INFORMATION
  Report Type: 
  Country: None (occurrence: None)
  Receive Date: 20040427
  Receipt Date: 20040419
  Transmission Date: 20050107
  Serious: Yes (Hospitalization)
  Sender: FDA-Public Use
  Company Number: FRWYE582916FEB04

PATIENT
  Age: 58 Year
  Sex: Male

DRUGS (9)
  1. OXAZEPAM [Suspect]
     Dosage: 25 MG 1 X PER 1 DAY, ORAL
     Route: 048
     Dates: start: 20030904
  2. ALDACTONE [Suspect]
     Dosage: 75 MG 2 X PER 1 DAY, ORAL
     Route: 048
     Dates: start: 20030904
  3. ATARAX [Suspect]
     Dosage: 25 MG 1 X  PER 1 DAY, ORAL
     Route: 048
     Dates: start: 20030912
  4. HEXAQUINE (NIAOULI OIL/QUININE BENZOATE/THIAMINE HYDROCHLORIDE), 0) [Suspect]
     Dosage: ORAL
     Route: 048
     Dates: start: 20030925, end: 20031001
  5. FUROSEMIDE [Suspect]
     Dosage: 100 MG 1 X  PER 1 DAY, ORAL
     Route: 048
     Dates: start: 20030904
  6. PROZAC [Suspect]
     Dosage: 20 MG 1 X PER 1 DAY, ORAL
     Route: 048
     Dates: start: 20030906
  7. MAGNESIUM (MAGNESIUM) [Concomitant]
  8. VITAMIN B1 AND B6 (PYRIDOXINE/THIAMINE) [Concomitant]
  9. VITAMIN B12 [Concomitant]

REACTIONS (7)
  - DERMATITIS EXFOLIATIVE [None]
  - DRUG ERUPTION [None]
  - LIVIDITY [None]
  - LYMPHOMA [None]
  - MYCOSIS FUNGOIDES [None]
  - PSORIASIS [None]
  - VITAMIN D DEFICIENCY [None]
